FAERS Safety Report 12106310 (Version 1)
Quarter: 2016Q1

REPORT INFORMATION
  Report Type: Spontaneous
  Country: CA (occurrence: CA)
  Receive Date: 20160223
  Receipt Date: 20160223
  Transmission Date: 20160526
  Serious: Yes (Other)
  Sender: FDA-Public Use
  Company Number: CA-PFIZER INC-2016110813

PATIENT
  Age: 30 Month
  Sex: Male

DRUGS (2)
  1. CHILDREN^S ADVIL FEVER FROM COLDS OR FLU [Suspect]
     Active Substance: IBUPROFEN
     Indication: PYREXIA
     Dosage: UNK
  2. CHILDREN^S ADVIL FEVER FROM COLDS OR FLU [Suspect]
     Active Substance: IBUPROFEN
     Dosage: UNK

REACTIONS (6)
  - Febrile convulsion [Unknown]
  - Drug administration error [Unknown]
  - Pyrexia [Unknown]
  - Drug effect incomplete [Unknown]
  - Product quality issue [Unknown]
  - Poor quality drug administered [Unknown]

NARRATIVE: CASE EVENT DATE: 20160216
